FAERS Safety Report 11358774 (Version 1)
Quarter: 2015Q3

REPORT INFORMATION
  Report Type: Spontaneous
  Country: US (occurrence: None)
  Receive Date: 20150806
  Receipt Date: 20150806
  Transmission Date: 20151125
  Serious: Yes (Hospitalization)
  Sender: FDA-Public Use
  Company Number: None

PATIENT
  Sex: Male
  Weight: 66.8 kg

DRUGS (22)
  1. ABACAVIR SULFATE. [Concomitant]
     Active Substance: ABACAVIR SULFATE
  2. EFAVIRENZ [Concomitant]
     Active Substance: EFAVIRENZ
  3. LAMIVUDINE. [Concomitant]
     Active Substance: LAMIVUDINE
  4. DOCUSATE SODIUM. [Concomitant]
     Active Substance: DOCUSATE SODIUM
  5. IPRATROPIUM-ALBUTEROL [Concomitant]
     Active Substance: ALBUTEROL\IPRATROPIUM
  6. LOPERAMIDE [Concomitant]
     Active Substance: LOPERAMIDE
  7. SENNA [Concomitant]
     Active Substance: SENNA LEAF\SENNOSIDES\SENNOSIDES A AND B
  8. NITROGLYCERIN SLOCAPS [Concomitant]
     Active Substance: NITROGLYCERIN
  9. HYDRALAZINE [Concomitant]
     Active Substance: HYDRALAZINE HYDROCHLORIDE
  10. ISOSORBIDE MONONITRATE. [Concomitant]
     Active Substance: ISOSORBIDE MONONITRATE
  11. BEANO [Concomitant]
     Active Substance: ASPERGILLUS NIGER .ALPHA.-GALACTOSIDASE
  12. SIMETHICONE (DIMETHICONE) [Concomitant]
     Active Substance: DIMETHICONE
  13. HARVONI [Suspect]
     Active Substance: LEDIPASVIR\SOFOSBUVIR
     Indication: HEPATITIS C
     Dosage: 400/90MG
     Route: 048
     Dates: start: 20150331, end: 20150622
  14. ASPIRIN. [Concomitant]
     Active Substance: ASPIRIN
  15. OXYBUTYNIN CHLORIDE. [Concomitant]
     Active Substance: OXYBUTYNIN CHLORIDE
  16. DESONIDE. [Concomitant]
     Active Substance: DESONIDE
  17. FUROSEMIDE. [Concomitant]
     Active Substance: FUROSEMIDE
  18. MULTIVITAMINS [Concomitant]
     Active Substance: VITAMINS
  19. ALBUTEROL INHALER [Concomitant]
     Active Substance: ALBUTEROL
  20. CARVEDILOL. [Concomitant]
     Active Substance: CARVEDILOL
  21. CLOPIDOGREL [Concomitant]
     Active Substance: CLOPIDOGREL BISULFATE
  22. PRAVASTATIN [Concomitant]
     Active Substance: PRAVASTATIN\PRAVASTATIN SODIUM

REACTIONS (2)
  - Abdominal pain [None]
  - Constipation [None]

NARRATIVE: CASE EVENT DATE: 20150403
